FAERS Safety Report 26059912 (Version 2)
Quarter: 2025Q4

REPORT INFORMATION
  Report Type: Spontaneous
  Country: CN (occurrence: CN)
  Receive Date: 20251118
  Receipt Date: 20251121
  Transmission Date: 20260118
  Serious: Yes (Hospitalization)
  Sender: MERCK SHARP & DOHME LLC
  Company Number: CN-009507513-2348872

PATIENT
  Age: 79 Year
  Sex: Male

DRUGS (1)
  1. INVANZ [Suspect]
     Active Substance: ERTAPENEM SODIUM
     Indication: Septic shock
     Route: 041
     Dates: start: 20251020, end: 20251020

REACTIONS (9)
  - Intensive care [Unknown]
  - Drug hypersensitivity [Recovering/Resolving]
  - Flushing [Recovering/Resolving]
  - Rash papular [Recovering/Resolving]
  - Blood pressure increased [Recovered/Resolved]
  - Breath sounds abnormal [Unknown]
  - Rales [Unknown]
  - Tachypnoea [Unknown]
  - Heart rate abnormal [Unknown]

NARRATIVE: CASE EVENT DATE: 20251021
